FAERS Safety Report 9805463 (Version 2)
Quarter: 2014Q1

REPORT INFORMATION
  Report Type: Report from Study
  Country: US (occurrence: US)
  Receive Date: 20140109
  Receipt Date: 20140109
  Transmission Date: 20141002
  Serious: Yes (Other)
  Sender: FDA-Public Use
  Company Number: US-ROCHE-1250289

PATIENT
  Age: 45 Year
  Sex: Male

DRUGS (15)
  1. RITUXAN [Suspect]
     Indication: EVANS SYNDROME
     Route: 042
     Dates: start: 20130806
  2. RITUXAN [Suspect]
     Indication: IMMUNE THROMBOCYTOPENIC PURPURA
     Route: 042
     Dates: start: 20130813
  3. RITUXAN [Suspect]
     Route: 042
     Dates: start: 20130820
  4. RITUXAN [Suspect]
     Route: 042
     Dates: start: 20130530
  5. PEPCID [Concomitant]
     Route: 042
  6. ALOXI [Concomitant]
     Route: 042
  7. DEXAMETHASONE [Concomitant]
     Route: 042
  8. GAMMAGARD [Concomitant]
     Route: 042
  9. DIPHENHYDRAMINE HYDROCHLORIDE [Concomitant]
     Route: 042
  10. ACETAMINOPHEN [Concomitant]
     Route: 048
  11. NPLATE [Concomitant]
     Route: 065
     Dates: start: 20130711
  12. NPLATE [Concomitant]
     Route: 065
     Dates: start: 20130716
  13. DEXTROSE [Concomitant]
     Route: 065
     Dates: start: 20130808
  14. SODIUM CHLORATE [Concomitant]
     Route: 042
  15. SOLU-MEDROL [Concomitant]
     Route: 042

REACTIONS (16)
  - Immune thrombocytopenic purpura [Unknown]
  - Dizziness [Recovered/Resolved]
  - Nausea [Not Recovered/Not Resolved]
  - Blood pressure decreased [Recovered/Resolved]
  - Laboratory test abnormal [Not Recovered/Not Resolved]
  - Anaemia of chronic disease [Unknown]
  - Neutropenia [Not Recovered/Not Resolved]
  - Arteriosclerosis coronary artery [Not Recovered/Not Resolved]
  - Vomiting [Not Recovered/Not Resolved]
  - Otitis externa [Unknown]
  - Neuropathy peripheral [Not Recovered/Not Resolved]
  - Diabetic neuropathy [Not Recovered/Not Resolved]
  - Ear infection [Unknown]
  - Myelitis [Unknown]
  - Anaemia [Unknown]
  - Headache [Unknown]
